FAERS Safety Report 9842186 (Version 2)
Quarter: 2014Q3

REPORT INFORMATION
  Report Type: Spontaneous
  Country: US (occurrence: US)
  Receive Date: 20140124
  Receipt Date: 20140831
  Transmission Date: 20150326
  Serious: Yes (Other)
  Sender: FDA-Public Use
  Company Number: US-009507513-1401USA010166

PATIENT
  Sex: Female

DRUGS (1)
  1. NUVARING [Suspect]
     Active Substance: ETHINYL ESTRADIOL\ETONOGESTREL
     Dosage: UNK
     Route: 067
     Dates: start: 201010

REACTIONS (8)
  - Cerebrovascular accident [Unknown]
  - Tinnitus [Unknown]
  - Pain in jaw [Unknown]
  - Facial pain [Unknown]
  - Sensory loss [Unknown]
  - Eyelid ptosis [Unknown]
  - Diplopia [Unknown]
  - Maternal exposure before pregnancy [Unknown]

NARRATIVE: CASE EVENT DATE: 201111
